FAERS Safety Report 24311750 (Version 1)
Quarter: 2024Q3

REPORT INFORMATION
  Report Type: Spontaneous
  Country: US (occurrence: US)
  Receive Date: 20240912
  Receipt Date: 20240912
  Transmission Date: 20241017
  Serious: No
  Sender: BIOCON
  Company Number: US-BIOCON-BCN-2024-000106

PATIENT
  Sex: Female

DRUGS (1)
  1. EVEROLIMUS [Suspect]
     Active Substance: EVEROLIMUS
     Indication: Product used for unknown indication
     Dosage: REPORTED NDC: 70377-0012-11 AND 70377-0012-1/1

REACTIONS (3)
  - Nausea [Unknown]
  - Product physical issue [Unknown]
  - Product dose omission in error [Unknown]
